FAERS Safety Report 23153837 (Version 1)
Quarter: 2023Q4

REPORT INFORMATION
  Report Type: Report from Study
  Country: US (occurrence: US)
  Receive Date: 20231107
  Receipt Date: 20231107
  Transmission Date: 20240109
  Serious: Yes (Hospitalization)
  Sender: FDA-Public Use
  Company Number: US-PFIZER INC-PV202300166991

PATIENT
  Age: 39 Year
  Sex: Female
  Weight: 75.5 kg

DRUGS (2)
  1. TALAZOPARIB [Suspect]
     Active Substance: TALAZOPARIB
     Dosage: TOTAL DOSE ADMINISTERED THIS COURSE (DOSE): 8000 MCG
     Dates: end: 20231008
  2. ZEN-003694 [Suspect]
     Active Substance: ZEN-003694
     Dosage: TOTAL DOSE ADMINISTERED THIS COURSE (DOSE): 768 MG
     Dates: end: 20231008

REACTIONS (6)
  - Pneumonia [Not Recovered/Not Resolved]
  - Cough [Recovering/Resolving]
  - Influenza like illness [Recovering/Resolving]
  - Haemoptysis [Recovering/Resolving]
  - Vomiting [Recovering/Resolving]
  - Dyspnoea [Not Recovered/Not Resolved]

NARRATIVE: CASE EVENT DATE: 20230911
